FAERS Safety Report 14434352 (Version 2)
Quarter: 2021Q3

REPORT INFORMATION
  Report Type: Spontaneous
  Country: US (occurrence: US)
  Receive Date: 20180124
  Receipt Date: 20210701
  Transmission Date: 20211014
  Serious: Yes (Disabling)
  Sender: FDA-Public Use
  Company Number: US-TEVA-2018-US-850153

PATIENT
  Age: 64 Year
  Sex: Female
  Weight: 96.16 kg

DRUGS (36)
  1. ALOXI [Concomitant]
     Active Substance: PALONOSETRON HYDROCHLORIDE
     Route: 042
     Dates: start: 20140722, end: 20140722
  2. ALOXI [Concomitant]
     Active Substance: PALONOSETRON HYDROCHLORIDE
     Route: 042
     Dates: start: 20140812, end: 20140812
  3. BENADRYL [Concomitant]
     Active Substance: DIPHENHYDRAMINE HYDROCHLORIDE
     Route: 042
     Dates: start: 20140812, end: 20140812
  4. ZANTAC [Concomitant]
     Active Substance: RANITIDINE HYDROCHLORIDE
     Route: 042
     Dates: start: 20140701, end: 20140701
  5. ASPIRIN. [Concomitant]
     Active Substance: ASPIRIN
     Route: 065
  6. DOCETAXEL ACCORD [Suspect]
     Active Substance: DOCETAXEL
     Indication: BREAST CANCER FEMALE
     Dosage: NO OF CYCLES: 04, DOSAGE: 150MG/M2, FREQUENCY: EVERY THREE WEEKS
     Route: 042
     Dates: start: 20140903, end: 20140903
  7. DECADRON [Concomitant]
     Active Substance: DEXAMETHASONE
     Route: 042
     Dates: start: 20140722, end: 20140722
  8. ZANTAC [Concomitant]
     Active Substance: RANITIDINE HYDROCHLORIDE
     Route: 042
     Dates: start: 20140903, end: 20140903
  9. METFORMIN [Concomitant]
     Active Substance: METFORMIN HYDROCHLORIDE
     Route: 065
  10. DOCETAXEL SAGENT [Suspect]
     Active Substance: DOCETAXEL
     Indication: BREAST CANCER FEMALE
     Dosage: NO OF CYCLES: 04, DOSAGE: 150MG/M2, FREQUENCY: EVERY THREE WEEKS
     Route: 042
     Dates: start: 20140812, end: 20140812
  11. DOCETAXEL SANDOZ [Suspect]
     Active Substance: DOCETAXEL
     Indication: BREAST CANCER FEMALE
     Dosage: NO OF CYCLES: 04, DOSAGE: 150MG/M2, FREQUENCY: EVERY THREE WEEKS
     Route: 042
     Dates: start: 20140701, end: 20140701
  12. DOCETAXEL SANDOZ [Suspect]
     Active Substance: DOCETAXEL
     Dosage: NO OF CYCLES: 04, DOSAGE: 150MG/M2, FREQUENCY: EVERY THREE WEEKS
     Route: 042
     Dates: start: 20140722, end: 20140722
  13. BENADRYL [Concomitant]
     Active Substance: DIPHENHYDRAMINE HYDROCHLORIDE
     Route: 042
     Dates: start: 20140722, end: 20140722
  14. ZANTAC [Concomitant]
     Active Substance: RANITIDINE HYDROCHLORIDE
     Route: 042
     Dates: start: 20140812, end: 20140812
  15. LISINOPRIL. [Concomitant]
     Active Substance: LISINOPRIL
     Route: 065
  16. CYTOXAN [Concomitant]
     Active Substance: CYCLOPHOSPHAMIDE
     Indication: BREAST CANCER FEMALE
     Dosage: NO OF CYCLES: 04, DOSAGE: 150MG/M2, FREQUENCY: EVERY THREE WEEKS
     Route: 042
     Dates: start: 20140701, end: 20140701
  17. ZANTAC [Concomitant]
     Active Substance: RANITIDINE HYDROCHLORIDE
     Route: 042
     Dates: start: 20140722, end: 20140722
  18. HYDRODIURIL [Concomitant]
     Active Substance: HYDROCHLOROTHIAZIDE
     Route: 065
  19. ALOXI [Concomitant]
     Active Substance: PALONOSETRON HYDROCHLORIDE
     Route: 042
     Dates: start: 20140701, end: 20140701
  20. PEPCID [Concomitant]
     Active Substance: FAMOTIDINE
     Route: 042
     Dates: start: 20140701, end: 20140701
  21. DECADRON [Concomitant]
     Active Substance: DEXAMETHASONE
     Route: 042
     Dates: start: 20140812, end: 20140812
  22. DIGOXIN. [Concomitant]
     Active Substance: DIGOXIN
     Route: 065
  23. BETAPACE [Concomitant]
     Active Substance: SOTALOL HYDROCHLORIDE
     Route: 065
     Dates: end: 2017
  24. CYTOXAN [Concomitant]
     Active Substance: CYCLOPHOSPHAMIDE
     Dosage: NO OF CYCLES: 04, DOSAGE: 150MG/M2, FREQUENCY: EVERY THREE WEEKS
     Route: 042
     Dates: start: 20140812, end: 20140812
  25. CYTOXAN [Concomitant]
     Active Substance: CYCLOPHOSPHAMIDE
     Dosage: NO OF CYCLES: 04, DOSAGE: 150MG/M2, FREQUENCY: EVERY THREE WEEKS
     Route: 042
     Dates: start: 20140903, end: 20140903
  26. ALOXI [Concomitant]
     Active Substance: PALONOSETRON HYDROCHLORIDE
     Route: 042
     Dates: start: 20140903, end: 20140903
  27. GLUCOTROL XL [Concomitant]
     Active Substance: GLIPIZIDE
     Route: 065
  28. PEPCID [Concomitant]
     Active Substance: FAMOTIDINE
     Route: 042
     Dates: start: 20140722, end: 20140722
  29. DECADRON [Concomitant]
     Active Substance: DEXAMETHASONE
     Route: 042
     Dates: start: 20140701, end: 20140701
  30. DECADRON [Concomitant]
     Active Substance: DEXAMETHASONE
     Route: 042
     Dates: start: 20140903, end: 20140903
  31. CYTOXAN [Concomitant]
     Active Substance: CYCLOPHOSPHAMIDE
     Dosage: NO OF CYCLES: 04, DOSAGE: 150MG/M2, FREQUENCY: EVERY THREE WEEKS
     Route: 042
     Dates: start: 20140722, end: 20140722
  32. BENADRYL [Concomitant]
     Active Substance: DIPHENHYDRAMINE HYDROCHLORIDE
     Route: 042
     Dates: start: 20140701, end: 20140701
  33. BENADRYL [Concomitant]
     Active Substance: DIPHENHYDRAMINE HYDROCHLORIDE
     Route: 042
     Dates: start: 20140903, end: 20140903
  34. ARIMIDEX [Concomitant]
     Active Substance: ANASTROZOLE
     Route: 065
  35. COUMADIN [Concomitant]
     Active Substance: WARFARIN SODIUM
     Route: 065
  36. TYLENOL [Concomitant]
     Active Substance: ACETAMINOPHEN
     Route: 065

REACTIONS (4)
  - Alopecia areata [Not Recovered/Not Resolved]
  - Hair colour changes [Not Recovered/Not Resolved]
  - Madarosis [Not Recovered/Not Resolved]
  - Hair texture abnormal [Not Recovered/Not Resolved]

NARRATIVE: CASE EVENT DATE: 201407
